FAERS Safety Report 4626283-0 (Version None)
Quarter: 2005Q2

REPORT INFORMATION
  Report Type: 
  Country: None (occurrence: None)
  Receive Date: 20050331
  Receipt Date: 20040226
  Transmission Date: 20051028
  Serious: Yes (Other)
  Sender: FDA-Public Use
  Company Number: 200410991BCC

PATIENT
  Age: 76 Year
  Sex: Male
  Weight: 64.8644 kg

DRUGS (8)
  1. ALEVE (CAPLET) [Suspect]
     Indication: ARTHRALGIA
     Dosage: 220 MG, BID, ORAL
     Route: 048
     Dates: start: 20020101, end: 20030501
  2. FLOMAX [Concomitant]
  3. AMITRIPTYLINE HCL TAB [Concomitant]
  4. TYLENOL (CAPLET) [Concomitant]
  5. VITAMIN E [Concomitant]
  6. MULTI-VITAMIN [Concomitant]
  7. VITAMIN C [Concomitant]
  8. TUMS [Concomitant]

REACTIONS (3)
  - ANAEMIA [None]
  - HAEMATURIA [None]
  - RENAL IMPAIRMENT [None]
